FAERS Safety Report 4796744-2 (Version None)
Quarter: 2005Q3

REPORT INFORMATION
  Report Type: 
  Country: None (occurrence: None)
  Receive Date: 20050916
  Receipt Date: 20041025
  Transmission Date: 20060218
  Serious: Yes (Hospitalization)
  Sender: FDA-Public Use
  Company Number: US-JNJFOC-20041007714

PATIENT
  Age: 30 Year
  Sex: Female
  Weight: 72.5755 kg

DRUGS (2)
  1. TOPAMAX [Suspect]
     Indication: RESTLESS LEGS SYNDROME
     Dosage: 25 MG, 1 IN 1 DAY, ORAL
     Route: 048
     Dates: start: 20040901
  2. ORAL CONTRACEPTIVE (ORAL CONTRACEPTIVE NOS) [Concomitant]

REACTIONS (3)
  - CONVULSION [None]
  - DYSARTHRIA [None]
  - MEMORY IMPAIRMENT [None]
